FAERS Safety Report 9453001 (Version 1)
Quarter: 2013Q3

REPORT INFORMATION
  Report Type: Spontaneous
  Country: US (occurrence: US)
  Receive Date: 20130812
  Receipt Date: 20130812
  Transmission Date: 20140515
  Serious: Yes (Death)
  Sender: FDA-Public Use
  Company Number: US-CUBIST PHARMACEUTICAL, INC.-2012CBST000073

PATIENT
  Age: 28 Year
  Sex: 0

DRUGS (3)
  1. CUBICIN [Suspect]
     Indication: STAPHYLOCOCCAL BACTERAEMIA
     Dosage: 6 MG/KG, QD
  2. VANCOMYCIN [Concomitant]
     Indication: STAPHYLOCOCCAL BACTERAEMIA
  3. CEFTAROLINE FOSAMIL [Concomitant]
     Indication: STAPHYLOCOCCAL BACTERAEMIA
     Dosage: 600 MG, Q8H

REACTIONS (2)
  - Renal failure chronic [Fatal]
  - Blood creatine phosphokinase increased [None]
